FAERS Safety Report 4307592-1 (Version None)
Quarter: 2004Q1

REPORT INFORMATION
  Report Type: 
  Country: None (occurrence: None)
  Receive Date: 20040225
  Receipt Date: 20031113
  Transmission Date: 20041129
  Serious: Yes (Life-Threatening, Hospitalization, Disabling, Other)
  Sender: FDA-Public Use
  Company Number: WAES 0311USA01846

PATIENT
  Age: 76 Year
  Sex: Female
  Weight: 65.318 kg

DRUGS (10)
  1. ZOCOR [Suspect]
     Indication: BLOOD CHOLESTEROL INCREASED
     Dosage: 80 MG/DAILY/PO
     Route: 048
     Dates: start: 19990101, end: 20031030
  2. ZOCOR [Suspect]
     Indication: HYPERLIPIDAEMIA
     Dosage: 80 MG/DAILY/PO
     Route: 048
     Dates: start: 19990101, end: 20031030
  3. LOPID [Suspect]
     Indication: BLOOD TRIGLYCERIDES INCREASED
     Dosage: 600 MG/BID/PO
     Route: 048
     Dates: end: 20031030
  4. ATARAX [Concomitant]
  5. ELAVIL [Concomitant]
  6. GLUCOPHAGE [Concomitant]
  7. HUMULIN 70/30 [Concomitant]
  8. HYDRODIURIL [Concomitant]
  9. PRINIVIL [Concomitant]
  10. ESTRADIOL [Concomitant]

REACTIONS (9)
  - ANAEMIA [None]
  - ARRHYTHMIA SUPRAVENTRICULAR [None]
  - CHOLELITHIASIS [None]
  - HEPATITIS [None]
  - INSOMNIA [None]
  - PLEURAL EFFUSION [None]
  - RENAL FAILURE ACUTE [None]
  - RHABDOMYOLYSIS [None]
  - URINARY TRACT INFECTION [None]
